FAERS Safety Report 9897450 (Version 1)
Quarter: 2014Q1

REPORT INFORMATION
  Report Type: Spontaneous
  Country: ES (occurrence: ES)
  Receive Date: 20140214
  Receipt Date: 20140214
  Transmission Date: 20141002
  Serious: Yes (Hospitalization)
  Sender: FDA-Public Use
  Company Number: ES-JNJFOC-20140204021

PATIENT
  Age: 64 Year
  Sex: Male

DRUGS (4)
  1. STELARA [Suspect]
     Indication: PSORIASIS
     Route: 058
     Dates: start: 20111101, end: 20120103
  2. INFLIXIMAB [Suspect]
     Indication: PSORIASIS
     Route: 042
     Dates: start: 20091109, end: 20111201
  3. CYCLOSPORINE [Suspect]
     Indication: PSORIASIS
     Route: 065
     Dates: start: 20090225, end: 20090528
  4. EFALIZUMAB [Suspect]
     Indication: PSORIASIS
     Route: 065
     Dates: start: 20081118, end: 20090324

REACTIONS (1)
  - Lung neoplasm malignant [Unknown]
